FAERS Safety Report 4447772-8 (Version None)
Quarter: 2004Q3

REPORT INFORMATION
  Report Type: 
  Country: None (occurrence: None)
  Receive Date: 20040913
  Receipt Date: 20040802
  Transmission Date: 20050211
  Serious: Yes (Life-Threatening, Hospitalization, Other)
  Sender: FDA-Public Use
  Company Number: 200418019GDDC

PATIENT
  Age: 54 Year
  Sex: Female

DRUGS (8)
  1. METRONIDAZOLE [Suspect]
     Indication: PROPHYLAXIS
     Route: 042
  2. ISOFLURANE [Suspect]
     Indication: ANAESTHESIA
     Dosage: DOSE: UNK
     Route: 055
  3. PROPOFOL [Concomitant]
  4. BUPIVACAINE [Concomitant]
     Route: 008
  5. DIAMORPHINE [Concomitant]
     Route: 042
  6. ROBINUL [Concomitant]
     Route: 042
  7. NEOSTIGMINE [Concomitant]
     Route: 042
  8. ATRACURIUM BESYLATE [Concomitant]
     Route: 042

REACTIONS (1)
  - HEPATIC NECROSIS [None]
